FAERS Safety Report 5729126-7 (Version None)
Quarter: 2008Q2

REPORT INFORMATION
  Report Type: 
  Country: None (occurrence: None)
  Receive Date: 20080505
  Receipt Date: 20080505
  Transmission Date: 20081010
  Serious: No
  Sender: FDA-Public Use
  Company Number: None

PATIENT
  Age: 56 Year
  Sex: Female
  Weight: 80.7403 kg

DRUGS (2)
  1. VERAPAMIL [Suspect]
     Indication: EYE DISORDER
     Dosage: 40 MG ONCE PO TID PO
     Route: 048
     Dates: start: 20021213
  2. VERAPAMIL [Suspect]
     Indication: MIGRAINE
     Dosage: 40 MG ONCE PO TID PO
     Route: 048
     Dates: start: 20021213

REACTIONS (1)
  - DRUG INEFFECTIVE [None]
